FAERS Safety Report 8182130-4 (Version None)
Quarter: 2012Q1

REPORT INFORMATION
  Report Type: 
  Country: None (occurrence: None)
  Receive Date: 20120302
  Receipt Date: 20110707
  Transmission Date: 20120608
  Serious: Yes (Other)
  Sender: FDA-Public Use
  Company Number: PHHY2011IR115659

PATIENT
  Sex: Female

DRUGS (1)
  1. LETROZOLE [Suspect]
     Indication: OVULATION INDUCTION
     Dosage: 7.5 MG, PER DAY
     Route: 065

REACTIONS (1)
  - ABORTION [None]
